FAERS Safety Report 17225108 (Version 2)
Quarter: 2020Q1

REPORT INFORMATION
  Report Type: Spontaneous
  Country: SE (occurrence: SE)
  Receive Date: 20200102
  Receipt Date: 20200120
  Transmission Date: 20200409
  Serious: Yes (Other)
  Sender: FDA-Public Use
  Company Number: SE-MYLANLABS-2019M1131626

PATIENT
  Sex: Female
  Weight: 55 kg

DRUGS (2)
  1. KALCIPOS-D [Concomitant]
     Active Substance: CALCIUM CARBONATE\CHOLECALCIFEROL
     Indication: OSTEOPOROSIS
     Dosage: 1 DOSAGE FORM, QD
     Route: 048
     Dates: start: 20190614
  2. ZOLEDRONIC ACID [Suspect]
     Active Substance: ZOLEDRONIC ACID
     Indication: OSTEOPOROSIS
     Dosage: 4 GRAM, 10 MONTH
     Dates: start: 20190731, end: 20190731

REACTIONS (7)
  - Myalgia [Recovered/Resolved]
  - Body temperature increased [Recovered/Resolved]
  - Vomiting [Recovered/Resolved]
  - Feeding disorder [Unknown]
  - Nausea [Recovered/Resolved]
  - Headache [Recovered/Resolved]
  - Poisoning [Unknown]

NARRATIVE: CASE EVENT DATE: 20190801
